FAERS Safety Report 24774461 (Version 3)
Quarter: 2025Q1

REPORT INFORMATION
  Report Type: Report from Study
  Country: US (occurrence: US)
  Receive Date: 20241225
  Receipt Date: 20250226
  Transmission Date: 20250409
  Serious: Yes (Other)
  Sender: ABBVIE
  Company Number: US-ABBVIE-5764635

PATIENT
  Age: 75 Year
  Sex: Male

DRUGS (2)
  1. HUMIRA [Suspect]
     Active Substance: ADALIMUMAB
     Indication: Psoriasis
     Route: 058
     Dates: start: 202312
  2. OTEZLA [Suspect]
     Active Substance: APREMILAST
     Indication: Product used for unknown indication
     Route: 065

REACTIONS (8)
  - Oral surgery [Recovered/Resolved]
  - Pain in extremity [Not Recovered/Not Resolved]
  - Peripheral swelling [Not Recovered/Not Resolved]
  - Joint swelling [Not Recovered/Not Resolved]
  - Gastrointestinal disorder [Recovering/Resolving]
  - Dental prosthesis placement [Recovering/Resolving]
  - Frequent bowel movements [Recovering/Resolving]
  - Device related infection [Recovering/Resolving]

NARRATIVE: CASE EVENT DATE: 20231130
